FAERS Safety Report 5659488-0 (Version None)
Quarter: 2008Q1

REPORT INFORMATION
  Report Type: 
  Country: None (occurrence: None)
  Receive Date: 20080311
  Receipt Date: 20080307
  Transmission Date: 20080703
  Serious: Yes (Life-Threatening, Hospitalization, Other)
  Sender: FDA-Public Use
  Company Number: PHBS2008JP03034

PATIENT
  Age: 60 Year
  Sex: Male

DRUGS (7)
  1. FASTIC [Suspect]
     Indication: DIABETES MELLITUS
     Dosage: 90 MG/DAY
     Route: 048
     Dates: start: 20071129, end: 20080128
  2. STARSIS [Suspect]
     Indication: DIABETES MELLITUS
     Dosage: 270 MG/DAY
     Route: 048
     Dates: start: 20070713, end: 20070803
  3. BASEN [Suspect]
     Indication: DIABETES MELLITUS
     Dosage: 0.6 MG/DAY
     Route: 048
     Dates: start: 20070720, end: 20070818
  4. MELBIN [Concomitant]
     Indication: DIABETES MELLITUS
     Dosage: 500 MG, UNK
  5. GLYCORAN [Concomitant]
     Dosage: 750 MG, UNK
     Dates: start: 20070303, end: 20070701
  6. RISUMIC [Concomitant]
     Dosage: UNK, UNK
     Dates: start: 20071205
  7. RISUMIC [Concomitant]
     Dates: start: 20071205

REACTIONS (11)
  - BLOOD CREATININE INCREASED [None]
  - BLOOD GLUCOSE INCREASED [None]
  - BLOOD LACTATE DEHYDROGENASE INCREASED [None]
  - BLOOD POTASSIUM INCREASED [None]
  - BLOOD UREA INCREASED [None]
  - C-REACTIVE PROTEIN INCREASED [None]
  - GAMMA-GLUTAMYLTRANSFERASE INCREASED [None]
  - LYMPHOCYTE PERCENTAGE INCREASED [None]
  - PLATELET COUNT INCREASED [None]
  - PLEURISY [None]
  - WHITE BLOOD CELL COUNT INCREASED [None]
